FAERS Safety Report 4752265-4 (Version None)
Quarter: 2005Q3

REPORT INFORMATION
  Report Type: 
  Country: None (occurrence: None)
  Receive Date: 20050825
  Receipt Date: 20050812
  Transmission Date: 20060218
  Serious: Yes (Hospitalization)
  Sender: FDA-Public Use
  Company Number: US-KINGPHARMUSA00001-K200501077

PATIENT
  Age: 19 Year
  Sex: Female

DRUGS (3)
  1. SEPTRA [Suspect]
     Indication: URINARY TRACT INFECTION
     Dosage: 160/800 MG, BID
  2. OXACILLIN [Concomitant]
     Indication: CELLULITIS
     Route: 042
  3. MULTIVITAMIN ^LAPPE^ [Concomitant]

REACTIONS (12)
  - AGITATION [None]
  - CONFUSIONAL STATE [None]
  - CSF PROTEIN INCREASED [None]
  - FATIGUE [None]
  - HALLUCINATION, AUDITORY [None]
  - HALLUCINATION, VISUAL [None]
  - HYPONATRAEMIA [None]
  - HYPOPHOSPHATAEMIA [None]
  - MENTAL STATUS CHANGES [None]
  - SPEECH DISORDER [None]
  - TRANSIENT PSYCHOSIS [None]
  - UNRESPONSIVE TO VERBAL STIMULI [None]
